FAERS Safety Report 17408590 (Version 3)
Quarter: 2020Q4

REPORT INFORMATION
  Report Type: Spontaneous
  Country: US (occurrence: US)
  Receive Date: 20200212
  Receipt Date: 20201217
  Transmission Date: 20210113
  Serious: Yes (Other)
  Sender: FDA-Public Use
  Company Number: US-INCYTE CORPORATION-2020IN001201

PATIENT

DRUGS (2)
  1. JAKAFI [Suspect]
     Active Substance: RUXOLITINIB
     Indication: ESSENTIAL THROMBOCYTHAEMIA
     Dosage: 10 MILLIGRAM, BID
     Route: 048
     Dates: start: 20190824
  2. JAKAFI [Suspect]
     Active Substance: RUXOLITINIB
     Indication: MYELOPROLIFERATIVE NEOPLASM
     Dosage: 5 MILLIGRAM, BID
     Route: 048
     Dates: start: 20190822

REACTIONS (9)
  - Off label use [Unknown]
  - Pulmonary congestion [Unknown]
  - Gingival erosion [Unknown]
  - Fatigue [Unknown]
  - Influenza [Unknown]
  - Dry skin [Unknown]
  - Exfoliative rash [Unknown]
  - Skin ulcer [Unknown]
  - Decreased activity [Unknown]

NARRATIVE: CASE EVENT DATE: 20190822
